FAERS Safety Report 8935233 (Version 1)
Quarter: 2012Q4

REPORT INFORMATION
  Report Type: 
  Country: US (occurrence: US)
  Receive Date: 20121129
  Receipt Date: 20121129
  Transmission Date: 20130627
  Serious: Yes (Life-Threatening, Hospitalization)
  Sender: FDA-Public Use
  Company Number: US-009507513-1211USA011680

PATIENT
  Age: 89 Year
  Sex: Male

DRUGS (9)
  1. INTEGRILIN [Suspect]
  2. MORPHINE [Concomitant]
  3. DOPAMINE HYDROCHLORIDE [Concomitant]
  4. DOBUTAMINE [Concomitant]
  5. AMIODARONE [Concomitant]
  6. LIDOCAINE [Concomitant]
  7. HEPARIN [Concomitant]
  8. EPINEPHRINE [Concomitant]
  9. NEO-SYNEPHRINE [Concomitant]

REACTIONS (6)
  - Chest pain [Recovering/Resolving]
  - Cardiac pacemaker removal [Recovering/Resolving]
  - Acute myocardial infarction [Recovering/Resolving]
  - Stent malfunction [Recovering/Resolving]
  - Haematemesis [Recovering/Resolving]
  - Cardiac disorder [Unknown]
